FAERS Safety Report 4512236-X (Version None)
Quarter: 2004Q4

REPORT INFORMATION
  Report Type: 
  Country: None (occurrence: None)
  Receive Date: 20041123
  Receipt Date: 20041111
  Transmission Date: 20050328
  Serious: Yes (Life-Threatening, Hospitalization)
  Sender: FDA-Public Use
  Company Number: 04H-062-0280842-00

PATIENT
  Age: 74 Year
  Sex: Female

DRUGS (2)
  1. HEPARIN SODIUM [Suspect]
     Indication: ANTICOAGULANT THERAPY
     Dosage: 5000 UNIT, EVERY 8 HOURS
  2. HEPARIN [Suspect]
     Indication: ANTICOAGULANT THERAPY

REACTIONS (9)
  - ARTERIAL INJURY [None]
  - ARTERIAL OCCLUSIVE DISEASE [None]
  - CEREBRAL DISORDER [None]
  - DEEP VEIN THROMBOSIS [None]
  - HEMIANOPIA [None]
  - HEPARIN-INDUCED THROMBOCYTOPENIA [None]
  - PERIPHERAL COLDNESS [None]
  - POST PROCEDURAL COMPLICATION [None]
  - WHITE CLOT SYNDROME [None]
